FAERS Safety Report 8261302-4 (Version None)
Quarter: 2012Q2

REPORT INFORMATION
  Report Type: 
  Country: None (occurrence: None)
  Receive Date: 20120405
  Receipt Date: 20120327
  Transmission Date: 20120825
  Serious: Yes (Hospitalization, Other)
  Sender: FDA-Public Use
  Company Number: US-BAYER-2011-096095

PATIENT
  Age: 17 Year
  Sex: Female
  Weight: 86 kg

DRUGS (12)
  1. NASONEX [Concomitant]
     Dosage: UNK
     Dates: start: 20081011
  2. YAZ [Suspect]
     Indication: ACNE
     Dosage: UNK
     Route: 048
     Dates: start: 20080601, end: 20081001
  3. IBUPROFEN (ADVIL) [Concomitant]
     Dosage: UNK UNK, PRN
  4. CLINDAMYCIN [Concomitant]
     Indication: ACNE
     Dosage: UNK
     Dates: start: 20070101
  5. YAZ [Suspect]
     Dosage: UNK
     Dates: start: 20080501
  6. IBUPROFEN [Concomitant]
     Dosage: UNK UNK, PRN
  7. DEPAKOTE [Concomitant]
     Indication: MIGRAINE
     Dosage: UNK
     Dates: start: 20060101
  8. ALBUTEROL [Concomitant]
     Dosage: UNK
     Dates: start: 19960101
  9. SINGULAIR [Concomitant]
     Indication: MULTIPLE ALLERGIES
     Dosage: UNK
     Dates: start: 20060101
  10. FINACEA [Concomitant]
  11. ALLEGRA [Concomitant]
     Indication: MULTIPLE ALLERGIES
     Dosage: UNK
     Dates: start: 20060101, end: 20100101
  12. FLONASE [Concomitant]
     Indication: HYPERSENSITIVITY
     Dosage: UNK
     Dates: start: 20080411

REACTIONS (11)
  - BILIARY DYSKINESIA [None]
  - INJURY [None]
  - SPLENOMEGALY [None]
  - ANXIETY [None]
  - DIARRHOEA [None]
  - PAIN [None]
  - GENERAL PHYSICAL HEALTH DETERIORATION [None]
  - GALLBLADDER INJURY [None]
  - EMOTIONAL DISTRESS [None]
  - SCAR [None]
  - CHOLECYSTITIS CHRONIC [None]
